FAERS Safety Report 11998255 (Version 1)
Quarter: 2016Q1

REPORT INFORMATION
  Report Type: Spontaneous
  Country: US (occurrence: US)
  Receive Date: 20160203
  Receipt Date: 20160203
  Transmission Date: 20160526
  Serious: No
  Sender: FDA-Public Use
  Company Number: US-009507513-1601USA010599

PATIENT
  Age: 87 Year
  Sex: Female

DRUGS (9)
  1. AMLODIPINE [Concomitant]
     Active Substance: AMLODIPINE BESYLATE
  2. LEVOTHYROXINE SODIUM. [Concomitant]
     Active Substance: LEVOTHYROXINE SODIUM
  3. KLONOPIN [Concomitant]
     Active Substance: CLONAZEPAM
  4. LASIX [Concomitant]
     Active Substance: FUROSEMIDE
  5. ZETIA [Suspect]
     Active Substance: EZETIMIBE
     Indication: BLOOD CHOLESTEROL
     Dosage: TIW (ONE 10 MG TABLET ON MONDAY, WEDNESDAY AND FRIDAY ONLY)
     Route: 048
     Dates: start: 201512, end: 20160125
  6. SOTALOL. [Concomitant]
     Active Substance: SOTALOL
  7. KLOR-CON [Concomitant]
     Active Substance: POTASSIUM CHLORIDE
  8. ADVAIR HFA [Concomitant]
     Active Substance: FLUTICASONE PROPIONATE\SALMETEROL XINAFOATE
  9. SINGULAIR [Concomitant]
     Active Substance: MONTELUKAST SODIUM

REACTIONS (3)
  - Myalgia [Recovered/Resolved]
  - Inappropriate schedule of drug administration [Unknown]
  - Myalgia [Recovered/Resolved]

NARRATIVE: CASE EVENT DATE: 20160122
